FAERS Safety Report 6967670-5 (Version None)
Quarter: 2010Q3

REPORT INFORMATION
  Report Type: 
  Country: None (occurrence: None)
  Receive Date: 20100907
  Receipt Date: 20100824
  Transmission Date: 20110219
  Serious: No
  Sender: FDA-Public Use
  Company Number: US-PFIZER INC-2010107375

PATIENT
  Sex: Male
  Weight: 57.596 kg

DRUGS (10)
  1. VIAGRA [Suspect]
     Indication: ERECTILE DYSFUNCTION
     Dosage: 50 MG, AS NEEDED
     Route: 048
     Dates: start: 20091101, end: 20100821
  2. ALLOPURINOL [Concomitant]
     Dosage: 100 MG, 1X/DAY
  3. LISINOPRIL [Concomitant]
     Dosage: 10 MG, 1X/DAY
  4. SIMVASTATIN [Concomitant]
     Dosage: 20 MG, 1X/DAY
  5. FUROSEMIDE [Concomitant]
     Dosage: 40 MG, 1X/DAY
  6. FERROUS SULFATE TAB [Concomitant]
     Dosage: 325 MG, 2X/DAY
  7. AZELASTINE [Concomitant]
     Dosage: 137 UG, TWO SPRAYS IN EACH NOSTRILS 1X/DAY
     Route: 045
  8. FLUTICASONE [Concomitant]
     Dosage: 50 UG, TWO SPRAYS IN EACH NOSTRILS 1X/DAY
     Route: 045
  9. FEXOFENADINE [Concomitant]
     Indication: SINUSITIS
     Dosage: 180 MG, AS NEEDED
  10. CARVEDILOL [Concomitant]
     Dosage: 6.25 MG, 2X/DAY

REACTIONS (2)
  - DRUG EFFECT DECREASED [None]
  - DRUG INEFFECTIVE [None]
